FAERS Safety Report 16949545 (Version 2)
Quarter: 2019Q4

REPORT INFORMATION
  Report Type: Report from Study
  Country: ZA (occurrence: ZA)
  Receive Date: 20191023
  Receipt Date: 20191118
  Transmission Date: 20200122
  Serious: Yes (Hospitalization)
  Sender: FDA-Public Use
  Company Number: ZA-REGENERON PHARMACEUTICALS, INC.-2019-58802

PATIENT

DRUGS (1)
  1. EYLEA [Suspect]
     Active Substance: AFLIBERCEPT
     Indication: AGE-RELATED MACULAR DEGENERATION
     Dosage: UNK
     Route: 031
     Dates: start: 20180607

REACTIONS (4)
  - Hypertension [Unknown]
  - Malaise [Unknown]
  - Diarrhoea [Unknown]
  - Hospitalisation [Unknown]
